FAERS Safety Report 15990346 (Version 1)
Quarter: 2019Q1

REPORT INFORMATION
  Report Type: Spontaneous
  Country: US (occurrence: US)
  Receive Date: 20190221
  Receipt Date: 20190221
  Transmission Date: 20190418
  Serious: Yes (Hospitalization, Other)
  Sender: FDA-Public Use
  Company Number: US-SUNOVION-2019SUN000678

PATIENT
  Age: 54 Year
  Sex: Male
  Weight: 82.09 kg

DRUGS (4)
  1. CELEBREX [Concomitant]
     Active Substance: CELECOXIB
     Dosage: UNK
  2. TRAZODONE [Concomitant]
     Active Substance: TRAZODONE HYDROCHLORIDE
  3. LATUDA [Suspect]
     Active Substance: LURASIDONE HYDROCHLORIDE
     Indication: BIPOLAR DISORDER
     Dosage: LOW DOSE
     Route: 048
     Dates: start: 20190201, end: 20190215
  4. LATUDA [Suspect]
     Active Substance: LURASIDONE HYDROCHLORIDE
     Indication: MAJOR DEPRESSION

REACTIONS (11)
  - Urticaria [Unknown]
  - Feeling abnormal [Unknown]
  - Cognitive disorder [Unknown]
  - Feeling of despair [Unknown]
  - Speech disorder [Unknown]
  - Abulia [Unknown]
  - Daydreaming [Unknown]
  - Dysarthria [Unknown]
  - Depression [Unknown]
  - Suicidal behaviour [Unknown]
  - Off label use [Unknown]
